FAERS Safety Report 11385948 (Version 1)
Quarter: 2015Q3

REPORT INFORMATION
  Report Type: Spontaneous
  Country: US (occurrence: None)
  Receive Date: 20150813
  Receipt Date: 20150813
  Transmission Date: 20151125
  Serious: Yes (Hospitalization)
  Sender: FDA-Public Use
  Company Number: None

PATIENT
  Age: 81 Year
  Sex: Male
  Weight: 114.9 kg

DRUGS (2)
  1. ASPIRIN. [Suspect]
     Active Substance: ASPIRIN
     Indication: CORONARY ARTERIAL STENT INSERTION
     Route: 048
     Dates: start: 20121010, end: 20150803
  2. APIXABAN [Suspect]
     Active Substance: APIXABAN
     Indication: ATRIAL FIBRILLATION
     Route: 048
     Dates: start: 20150701, end: 20150803

REACTIONS (7)
  - Diarrhoea [None]
  - Dyspnoea exertional [None]
  - Gastrointestinal haemorrhage [None]
  - Condition aggravated [None]
  - Faeces discoloured [None]
  - Anaemia [None]
  - Arteriovenous malformation [None]

NARRATIVE: CASE EVENT DATE: 20150803
